FAERS Safety Report 8556544-4 (Version None)
Quarter: 2012Q3

REPORT INFORMATION
  Report Type: 
  Country: None (occurrence: None)
  Receive Date: 20120801
  Receipt Date: 20120724
  Transmission Date: 20120928
  Serious: Yes (Hospitalization)
  Sender: FDA-Public Use
  Company Number: US-BAYER-2011-036928

PATIENT
  Age: 32 Year
  Sex: Female
  Weight: 86.621 kg

DRUGS (3)
  1. YASMIN [Suspect]
     Indication: CONTRACEPTION
     Dosage: UNK UNK, UNK
     Dates: start: 20010901, end: 20020324
  2. CORGARD [Concomitant]
     Indication: MIGRAINE
  3. FERROUS SULFATE TAB [Concomitant]
     Indication: ANAEMIA OF PREGNANCY

REACTIONS (12)
  - PARAESTHESIA [None]
  - PULMONARY EMBOLISM [None]
  - FEAR OF DISEASE [None]
  - CHEST PAIN [None]
  - ANXIETY [None]
  - MENTAL DISORDER [None]
  - DYSPNOEA [None]
  - PAIN [None]
  - MEDICAL DIET [None]
  - FEAR OF DEATH [None]
  - DEPRESSION [None]
  - DEEP VEIN THROMBOSIS [None]
